FAERS Safety Report 9493795 (Version 1)
Quarter: 2013Q3

REPORT INFORMATION
  Report Type: Spontaneous
  Country: TW (occurrence: TW)
  Receive Date: 20130902
  Receipt Date: 20130902
  Transmission Date: 20140515
  Serious: Yes (Other)
  Sender: FDA-Public Use
  Company Number: TW-MYLANLABS-2013S1018893

PATIENT
  Age: 47 Year
  Sex: Female

DRUGS (2)
  1. QUETIAPINE [Suspect]
     Indication: SCHIZOPHRENIA
     Dosage: 400 MG/DAY
     Route: 065
  2. BROMAZEPAM [Concomitant]
     Dosage: 3 MG/DAY
     Route: 065

REACTIONS (1)
  - Hepatocellular injury [Recovered/Resolved]
